FAERS Safety Report 24399590 (Version 2)
Quarter: 2024Q4

REPORT INFORMATION
  Report Type: Report from Study
  Country: US (occurrence: US)
  Receive Date: 20241005
  Receipt Date: 20241008
  Transmission Date: 20250114
  Serious: No
  Sender: ROCHE
  Company Number: US-ROCHE-10000094655

PATIENT
  Age: 28 Year
  Sex: Female

DRUGS (1)
  1. OCREVUS [Suspect]
     Active Substance: OCRELIZUMAB
     Indication: Relapsing multiple sclerosis
     Dosage: 300 MG DAY AND DAY 15 THEN EVERY 6 MONTH.?DATE. MARCH 3, 2023. RECEIVED OCREVUS, OCREVUS LAST ADMINI
     Route: 065
     Dates: start: 202202, end: 20230126

REACTIONS (2)
  - COVID-19 [Recovered/Resolved]
  - Headache [Recovering/Resolving]

NARRATIVE: CASE EVENT DATE: 20240910
